FAERS Safety Report 9857435 (Version 1)
Quarter: 2014Q1

REPORT INFORMATION
  Report Type: Spontaneous
  Country: BR (occurrence: BR)
  Receive Date: 20140131
  Receipt Date: 20140131
  Transmission Date: 20141002
  Serious: Yes (Hospitalization)
  Sender: FDA-Public Use
  Company Number: BR-ASTRAZENECA-2014SE05804

PATIENT
  Age: 793 Month
  Sex: Female
  Weight: 69 kg

DRUGS (6)
  1. SELOZOK [Suspect]
     Indication: CARDIAC DISORDER
     Route: 048
     Dates: start: 2012, end: 201310
  2. SELOZOK [Suspect]
     Indication: CARDIAC DISORDER
     Route: 048
     Dates: start: 201310
  3. ASPRINA PREVENT [Concomitant]
     Indication: ISCHAEMIC HEART DISEASE PROPHYLAXIS
     Dosage: DAILY
     Route: 048
     Dates: start: 2006
  4. LEVOTHYROXINE [Concomitant]
     Indication: HYPOTHYROIDISM
     Dosage: DAILY
     Route: 048
     Dates: start: 2007
  5. GINKGO BILOBA EXTRACT (COMPOUNDED MEDICATION) [Concomitant]
     Indication: LABYRINTHITIS
     Dosage: TWO TIMES A DAY
     Dates: start: 2007
  6. PANTOPRAZOLE [Concomitant]
     Indication: GASTRITIS
     Dosage: DAILY
     Route: 048
     Dates: start: 2004

REACTIONS (3)
  - Device occlusion [Recovered/Resolved]
  - Thrombosis in device [Recovered/Resolved]
  - Off label use [Recovered/Resolved]
